FAERS Safety Report 21401012 (Version 1)
Quarter: 2022Q4

REPORT INFORMATION
  Report Type: Report from Study
  Country: US (occurrence: US)
  Receive Date: 20221003
  Receipt Date: 20221003
  Transmission Date: 20230113
  Serious: No
  Sender: FDA-Public Use
  Company Number: US-ABBVIE-4130741

PATIENT
  Sex: Female
  Weight: 138.79 kg

DRUGS (14)
  1. SKYRIZI [Suspect]
     Active Substance: RISANKIZUMAB-RZAA
     Indication: Ankylosing spondylitis
     Dosage: WEEK 4, THEN EVERY 12 WEEK
     Route: 058
     Dates: start: 20220608
  2. SKYRIZI [Suspect]
     Active Substance: RISANKIZUMAB-RZAA
     Indication: Psoriatic arthropathy
  3. SKYRIZI [Suspect]
     Active Substance: RISANKIZUMAB-RZAA
     Indication: Illness
  4. PREDNISONE 5 MG TAB DS PK [Concomitant]
     Indication: Product used for unknown indication
  5. ALLEGRA-D 24 HOUR [Concomitant]
     Active Substance: FEXOFENADINE HYDROCHLORIDE\PSEUDOEPHEDRINE HYDROCHLORIDE
     Indication: Product used for unknown indication
  6. PROZAC 10 MG CAPSULE [Concomitant]
     Indication: Product used for unknown indication
  7. BUSPIRONE HCL [Concomitant]
     Active Substance: BUSPIRONE HYDROCHLORIDE
     Indication: Product used for unknown indication
  8. PROTONIX 40 MG TABLET DR [Concomitant]
     Indication: Product used for unknown indication
  9. VITAMIN D2 1250 MCG CAPSULE [Concomitant]
     Indication: Product used for unknown indication
  10. METFORM IN ER GASTRIC [Concomitant]
     Indication: Product used for unknown indication
  11. ATORVASTATIN CALCIUM [Concomitant]
     Active Substance: ATORVASTATIN CALCIUM
     Indication: Product used for unknown indication
  12. VITAMIN B COMPLEX CAPSULE [Concomitant]
     Indication: Product used for unknown indication
  13. LOSARTAN- HYDROCHLOROTHIAZIDE [Concomitant]
     Indication: Product used for unknown indication
  14. AMLODIPINE BESYLATE [Concomitant]
     Active Substance: AMLODIPINE BESYLATE
     Indication: Product used for unknown indication

REACTIONS (1)
  - Drug ineffective [Unknown]
